FAERS Safety Report 11292766 (Version 1)
Quarter: 2015Q3

REPORT INFORMATION
  Report Type: Spontaneous
  Country: US (occurrence: US)
  Receive Date: 20150722
  Receipt Date: 20150722
  Transmission Date: 20151125
  Serious: Yes (Hospitalization)
  Sender: FDA-Public Use
  Company Number: US-BAYER-2015-005900

PATIENT
  Age: 76 Year
  Sex: Male

DRUGS (24)
  1. HYDROCHLOROTHIAZIDE. [Concomitant]
     Active Substance: HYDROCHLOROTHIAZIDE
     Dosage: 25 MG, QD
     Route: 048
     Dates: start: 20120325, end: 20121216
  2. XARELTO [Suspect]
     Active Substance: RIVAROXABAN
     Indication: ATRIAL FIBRILLATION
     Dosage: 10 MG, UNK
     Route: 048
     Dates: start: 20120221, end: 20121129
  3. AMLODIPINE [Concomitant]
     Active Substance: AMLODIPINE BESYLATE
     Dosage: UNK
  4. INTERFERON BETA NOS [Concomitant]
     Active Substance: INTERFERON BETA
     Dosage: UNK
  5. SODIUM BICARBONATE. [Concomitant]
     Active Substance: SODIUM BICARBONATE
     Dosage: UNK
     Dates: start: 20120421, end: 20121011
  6. GLYBURIDE. [Concomitant]
     Active Substance: GLYBURIDE
     Dosage: UNK
     Dates: end: 20121221
  7. METOLAZONE. [Concomitant]
     Active Substance: METOLAZONE
     Dosage: UNK
     Dates: start: 20120622
  8. LASIX [Concomitant]
     Active Substance: FUROSEMIDE
     Route: 048
  9. FINASTERIDE. [Concomitant]
     Active Substance: FINASTERIDE
     Dosage: 5 MG, QD
     Route: 048
  10. NEPHRO-VITE RX [Concomitant]
     Dosage: UNK
  11. FEBUXOSTAT. [Concomitant]
     Active Substance: FEBUXOSTAT
     Dosage: 40 MG, UNK
     Route: 048
     Dates: start: 20120325
  12. KLOR-CON [Concomitant]
     Active Substance: POTASSIUM CHLORIDE
     Dosage: 10 MEQ, BID
     Route: 048
     Dates: start: 20120622
  13. CLONIDINE. [Concomitant]
     Active Substance: CLONIDINE
     Dosage: UNK
  14. METOPROLOL [Concomitant]
     Active Substance: METOPROLOL
     Dosage: UNK
  15. AVODART [Concomitant]
     Active Substance: DUTASTERIDE
     Dosage: 0.5 MG, QD
     Route: 048
  16. CYPROHEPTADINE. [Concomitant]
     Active Substance: CYPROHEPTADINE
     Dosage: UNK
  17. LACTULOSE. [Concomitant]
     Active Substance: LACTULOSE
     Dosage: UNK
  18. ZEMPLAR [Concomitant]
     Active Substance: PARICALCITOL
     Dosage: UNK
     Dates: start: 20120420
  19. BUSPIRONE HYDROCHLORIDE. [Concomitant]
     Active Substance: BUSPIRONE HYDROCHLORIDE
     Dosage: 10 MG, QD
     Route: 048
     Dates: start: 20121114, end: 20130131
  20. XARELTO [Interacting]
     Active Substance: RIVAROXABAN
     Indication: EMBOLISM
  21. XARELTO [Interacting]
     Active Substance: RIVAROXABAN
     Indication: CEREBROVASCULAR ACCIDENT PROPHYLAXIS
  22. ACETYLSALICYLIC ACID({=100 MG) [Interacting]
     Active Substance: ASPIRIN
     Indication: PRODUCT USED FOR UNKNOWN INDICATION
     Dosage: UNK, QD
     Route: 048
     Dates: end: 20121129
  23. TYLENOL [Concomitant]
     Active Substance: ACETAMINOPHEN
     Dosage: UNK
     Route: 048
  24. COLCHICINE. [Concomitant]
     Active Substance: COLCHICINE
     Dosage: UNK
     Dates: end: 20120223

REACTIONS (2)
  - Haemorrhagic anaemia [Unknown]
  - Large intestinal haemorrhage [Unknown]

NARRATIVE: CASE EVENT DATE: 20121129
